FAERS Safety Report 13937215 (Version 1)
Quarter: 2017Q3

REPORT INFORMATION
  Report Type: Spontaneous
  Country: CA (occurrence: CA)
  Receive Date: 20170905
  Receipt Date: 20170905
  Transmission Date: 20171127
  Serious: Yes (Hospitalization, Other)
  Sender: FDA-Public Use
  Company Number: CA-PFIZER INC-2017090110

PATIENT
  Age: 10 Year
  Sex: Female

DRUGS (1)
  1. CHILDRENS ADVIL [Suspect]
     Active Substance: IBUPROFEN
     Indication: PAIN IN EXTREMITY
     Dosage: 12.5 ML, 1X/DAY (12.5 ML EACH TIME WITH MEAL FOR A TOTAL OF 3 TIMES ON 3 DIFFERENT DAYS)
     Dates: start: 20170202, end: 20170204

REACTIONS (4)
  - Gastric ulcer [Unknown]
  - Pain [Unknown]
  - Emotional distress [Unknown]
  - Haematemesis [Recovered/Resolved]

NARRATIVE: CASE EVENT DATE: 2017
